FAERS Safety Report 14559395 (Version 3)
Quarter: 2018Q1

REPORT INFORMATION
  Report Type: Report from Study
  Country: GB (occurrence: GB)
  Receive Date: 20180221
  Receipt Date: 20180319
  Transmission Date: 20180509
  Serious: Yes (Hospitalization, Other)
  Sender: FDA-Public Use
  Company Number: GB-TEVA-2018-GB-858621

PATIENT
  Age: 49 Year
  Sex: Male

DRUGS (2)
  1. COPAXONE [Suspect]
     Active Substance: GLATIRAMER ACETATE
     Indication: MULTIPLE SCLEROSIS
     Route: 058
     Dates: start: 20170620
  2. THYROXINE (NOS) [Concomitant]
     Route: 065

REACTIONS (28)
  - Tremor [Unknown]
  - Symptom recurrence [Unknown]
  - Joint swelling [Unknown]
  - Pharyngeal oedema [Unknown]
  - Loss of consciousness [Unknown]
  - Anaphylactic shock [Unknown]
  - Dizziness [Unknown]
  - Abdominal pain [Unknown]
  - Swelling face [Unknown]
  - Vomiting [Unknown]
  - Adverse drug reaction [Unknown]
  - Skin mass [Unknown]
  - Injection site vesicles [Unknown]
  - Swollen tongue [Unknown]
  - Malaise [Unknown]
  - Palpitations [Unknown]
  - Chest pain [Unknown]
  - Dyspnoea [Unknown]
  - Skin exfoliation [Unknown]
  - Skin reaction [Unknown]
  - Blood pressure decreased [Unknown]
  - Malaise [Unknown]
  - Skin irritation [Unknown]
  - Blister rupture [Unknown]
  - Hypersensitivity [Unknown]
  - Apparent death [Unknown]
  - Hepatic function abnormal [Unknown]
  - Drug dose omission [Unknown]

NARRATIVE: CASE EVENT DATE: 2017
